FAERS Safety Report 8555618-1 (Version None)
Quarter: 2012Q3

REPORT INFORMATION
  Report Type: 
  Country: None (occurrence: None)
  Receive Date: 20120731
  Receipt Date: 20120222
  Transmission Date: 20120928
  Serious: Yes (Other)
  Sender: FDA-Public Use
  Company Number: US-ASTRAZENECA-2008UW27999

PATIENT
  Age: 38 Year
  Sex: Male
  Weight: 81.6 kg

DRUGS (4)
  1. SEROQUEL XR [Suspect]
     Route: 048
  2. SEROQUEL XR [Suspect]
     Dosage: TAKES 200-250 MG PER NIGHT
     Route: 048
  3. METHADON HYDROCHLORIDE TAB [Concomitant]
  4. CLONAZEPAM [Concomitant]

REACTIONS (6)
  - DRUG DOSE OMISSION [None]
  - DRUG WITHDRAWAL SYNDROME [None]
  - HEADACHE [None]
  - INCORRECT DOSE ADMINISTERED [None]
  - INSOMNIA [None]
  - HANGOVER [None]
